FAERS Safety Report 8465979 (Version 5)
Quarter: 2012Q4

REPORT INFORMATION
  Report Type: 
  Country: US (occurrence: US)
  Receive Date: 20120319
  Receipt Date: 20121019
  Transmission Date: 20130627
  Serious: Yes (Hospitalization, Other)
  Sender: FDA-Public Use
  Company Number: US-009507513-1203USA02009

PATIENT

DRUGS (6)
  1. FOSAMAX [Suspect]
     Indication: OSTEOPENIA
     Dosage: 10  mg, qd
     Route: 048
     Dates: start: 20020102, end: 200502
  2. FOSAMAX [Suspect]
     Indication: BACK PAIN
     Dosage: 70 mg, qw
     Route: 048
     Dates: start: 200503, end: 200712
  3. FOSAMAX [Suspect]
     Indication: OSTEOPENIA
     Dosage: 70 mg, UNK
     Route: 048
     Dates: start: 200802, end: 201004
  4. FOSAMAX [Suspect]
     Indication: BACK PAIN
  5. FOSAMAX [Suspect]
     Indication: OSTEOPENIA
     Dosage: 70 mg, UNK
     Route: 048
     Dates: start: 20080225, end: 20100118
  6. FOSAMAX [Suspect]
     Indication: BACK PAIN

REACTIONS (45)
  - Femur fracture [Recovered/Resolved]
  - Patella fracture [Unknown]
  - Aortic aneurysm [Not Recovered/Not Resolved]
  - Open reduction of fracture [Unknown]
  - Fall [Unknown]
  - Anaemia postoperative [Recovering/Resolving]
  - Atelectasis [Unknown]
  - Fall [Unknown]
  - Musculoskeletal disorder [Unknown]
  - Tooth disorder [Unknown]
  - Off label use [Unknown]
  - Osteoarthritis [Not Recovered/Not Resolved]
  - Mass [Unknown]
  - Urinary tract infection [Unknown]
  - Type 2 diabetes mellitus [Unknown]
  - Peripheral vascular disorder [Unknown]
  - Anaemia [Unknown]
  - Cataract [Unknown]
  - Chronic obstructive pulmonary disease [Unknown]
  - Spinal compression fracture [Recovering/Resolving]
  - Joint dislocation [Unknown]
  - Osteoarthritis [Unknown]
  - Contusion [Unknown]
  - Hyperlipidaemia [Unknown]
  - Blood cholesterol increased [Unknown]
  - Chondromalacia [Unknown]
  - Hypertension [Unknown]
  - Fall [Unknown]
  - Heart rate irregular [Unknown]
  - Pleurisy [Unknown]
  - Urinary incontinence [Unknown]
  - Osteoarthritis [Unknown]
  - Rib fracture [Recovering/Resolving]
  - Spinal osteoarthritis [Unknown]
  - Osteoarthritis [Unknown]
  - Osteoarthritis [Unknown]
  - Cardiac murmur [Unknown]
  - White blood cell count increased [Unknown]
  - Blood magnesium decreased [Unknown]
  - Electrocardiogram ST segment abnormal [Unknown]
  - Intervertebral disc protrusion [Unknown]
  - Exostosis [Unknown]
  - Spinal column stenosis [Unknown]
  - Musculoskeletal chest pain [Unknown]
  - Joint injury [Unknown]
